FAERS Safety Report 15249025 (Version 1)
Quarter: 2018Q3

REPORT INFORMATION
  Report Type: Spontaneous
  Country: US (occurrence: US)
  Receive Date: 20180807
  Receipt Date: 20180807
  Transmission Date: 20181010
  Serious: No
  Sender: FDA-Public Use
  Company Number: US-BAUSCH-BL-2018-020447

PATIENT
  Age: 69 Year
  Sex: Female
  Weight: 65.76 kg

DRUGS (19)
  1. WELLBUTRIN XL [Suspect]
     Active Substance: BUPROPION HYDROCHLORIDE
     Indication: PRODUCT USED FOR UNKNOWN INDICATION
     Route: 065
  2. CARBAMAZEPINE. [Interacting]
     Active Substance: CARBAMAZEPINE
     Route: 048
     Dates: start: 20180610, end: 20180716
  3. CARBAMAZEPINE. [Interacting]
     Active Substance: CARBAMAZEPINE
     Route: 048
     Dates: start: 20180621
  4. CARBAMAZEPINE. [Interacting]
     Active Substance: CARBAMAZEPINE
     Route: 048
     Dates: start: 20180617
  5. AMBIEN [Concomitant]
     Active Substance: ZOLPIDEM TARTRATE
     Indication: PRODUCT USED FOR UNKNOWN INDICATION
  6. VITAMIN D [Concomitant]
     Active Substance: CHOLECALCIFEROL
     Indication: PRODUCT USED FOR UNKNOWN INDICATION
  7. FEMHRT [Concomitant]
     Active Substance: ETHINYL ESTRADIOL\NORETHINDRONE ACETATE
     Indication: PRODUCT USED FOR UNKNOWN INDICATION
  8. ROBAXIN [Concomitant]
     Active Substance: METHOCARBAMOL
     Indication: PRODUCT USED FOR UNKNOWN INDICATION
  9. SYNTHROID [Concomitant]
     Active Substance: LEVOTHYROXINE SODIUM
     Indication: PRODUCT USED FOR UNKNOWN INDICATION
  10. AMOXICILLIN. [Concomitant]
     Active Substance: AMOXICILLIN
     Indication: PRODUCT USED FOR UNKNOWN INDICATION
  11. VITAMIN C [Concomitant]
     Active Substance: ASCORBIC ACID
     Indication: PRODUCT USED FOR UNKNOWN INDICATION
  12. NEXIUM [Concomitant]
     Active Substance: ESOMEPRAZOLE MAGNESIUM
     Indication: PRODUCT USED FOR UNKNOWN INDICATION
  13. BIOTIN [Concomitant]
     Active Substance: BIOTIN
     Indication: PRODUCT USED FOR UNKNOWN INDICATION
  14. ACIDOPHILUS [Concomitant]
     Active Substance: LACTOBACILLUS ACIDOPHILUS
     Indication: PRODUCT USED FOR UNKNOWN INDICATION
  15. SINGULAIR [Concomitant]
     Active Substance: MONTELUKAST SODIUM
     Indication: PRODUCT USED FOR UNKNOWN INDICATION
  16. LIPOFLAVONOID [Concomitant]
     Active Substance: UNSPECIFIED INGREDIENT
     Indication: PRODUCT USED FOR UNKNOWN INDICATION
  17. CARBAMAZEPINE. [Interacting]
     Active Substance: CARBAMAZEPINE
     Indication: NEURALGIA
     Route: 048
     Dates: start: 20180603, end: 20180609
  18. CARBAMAZEPINE. [Interacting]
     Active Substance: CARBAMAZEPINE
     Route: 048
     Dates: start: 20180617
  19. CARBAMAZEPINE. [Interacting]
     Active Substance: CARBAMAZEPINE
     Route: 048
     Dates: start: 20180621, end: 20180624

REACTIONS (6)
  - Drug effect incomplete [Unknown]
  - Malaise [Recovering/Resolving]
  - Headache [Recovered/Resolved]
  - Feeling abnormal [Recovering/Resolving]
  - Rash [Recovered/Resolved]
  - Drug interaction [Unknown]

NARRATIVE: CASE EVENT DATE: 2018
